FAERS Safety Report 12235620 (Version 2)
Quarter: 2016Q2

REPORT INFORMATION
  Report Type: Spontaneous
  Country: US (occurrence: US)
  Receive Date: 20160404
  Receipt Date: 20160601
  Transmission Date: 20160815
  Serious: Yes (Other)
  Sender: FDA-Public Use
  Company Number: US-AMGEN-USASP2016036988

PATIENT
  Age: 80 Year
  Sex: Female

DRUGS (10)
  1. REPATHA [Suspect]
     Active Substance: EVOLOCUMAB
     Indication: PRODUCT USED FOR UNKNOWN INDICATION
     Dosage: 140 MG, UNK
     Route: 065
     Dates: start: 20160321
  2. BRILINTA [Concomitant]
     Active Substance: TICAGRELOR
  3. FLONASE [Concomitant]
     Active Substance: FLUTICASONE PROPIONATE
  4. ASPIRIN. [Concomitant]
     Active Substance: ASPIRIN
  5. AMLODIPINE [Concomitant]
     Active Substance: AMLODIPINE BESYLATE
  6. PANTOPRAZOLE [Concomitant]
     Active Substance: PANTOPRAZOLE SODIUM
  7. ALEVE [Concomitant]
     Active Substance: NAPROXEN SODIUM
  8. TYLENOL [Concomitant]
     Active Substance: ACETAMINOPHEN
  9. LOSARTAN. [Concomitant]
     Active Substance: LOSARTAN
  10. NITROGLYCERIN. [Concomitant]
     Active Substance: NITROGLYCERIN
     Dosage: UNK UNK, AS NECESSARY

REACTIONS (9)
  - Local swelling [Recovering/Resolving]
  - Neuropathy peripheral [Unknown]
  - Pruritus [Unknown]
  - Dyspnoea [Recovering/Resolving]
  - Rash [Recovering/Resolving]
  - Swelling face [Recovering/Resolving]
  - Peripheral swelling [Recovering/Resolving]
  - Asthenia [Unknown]
  - Flushing [Recovering/Resolving]

NARRATIVE: CASE EVENT DATE: 201603
